FAERS Safety Report 9618111 (Version 5)
Quarter: 2014Q2

REPORT INFORMATION
  Report Type: Spontaneous
  Country: US (occurrence: US)
  Receive Date: 20131013
  Receipt Date: 20140507
  Transmission Date: 20141212
  Serious: No
  Sender: FDA-Public Use
  Company Number: US-009507513-1310USA002073

PATIENT
  Sex: Male

DRUGS (9)
  1. REBETOL [Suspect]
     Indication: HEPATITIS C
     Dosage: 3 PILLS (600 MG), BID
     Route: 048
     Dates: start: 20130904, end: 20140318
  2. VICTRELIS [Suspect]
     Indication: HEPATITIS C
     Dosage: 4 PILLS (800 MG), TID
     Route: 048
     Dates: start: 20131001, end: 20140318
  3. PEGASYS [Suspect]
     Indication: HEPATITIS C
     Dosage: STRENGTH: 180MCG/0.5ML, DOSE 180MCG
     Route: 058
     Dates: start: 20130903, end: 20140311
  4. ACETAMINOPHEN (+) HYDROCODONE BITARTRATE [Concomitant]
     Dosage: 1 EVERY 8 HOURS (STRENGH 10-325)
  5. PROAIR HFA [Concomitant]
     Dosage: 2 PUFFS EVERY 4 HOUR
  6. SYMBICORT [Concomitant]
     Dosage: 2 PUFFS, AS NEEDED
  7. PRILOSEC [Concomitant]
     Dosage: 20 MG, 1 EVERY DAY
     Route: 048
  8. CLARITIN [Concomitant]
     Dosage: 10 MG, 1 EVERY DAY
     Route: 048
  9. BENADRYL [Concomitant]
     Dosage: 25 MG, 1 CAPSULE BID PRN
     Route: 048

REACTIONS (28)
  - Nephrolithiasis [Unknown]
  - Throat tightness [Unknown]
  - Cough [Unknown]
  - Vomiting [Unknown]
  - Chest pain [Unknown]
  - Throat irritation [Unknown]
  - Hyperhidrosis [Unknown]
  - Feeling hot [Unknown]
  - Diarrhoea [Unknown]
  - Dyspnoea [Unknown]
  - Platelet count decreased [Unknown]
  - Urticaria [Recovered/Resolved]
  - Insomnia [Unknown]
  - Pollakiuria [Unknown]
  - Fatigue [Not Recovered/Not Resolved]
  - Muscle spasms [Unknown]
  - Headache [Unknown]
  - Platelet count decreased [Unknown]
  - Rash [Unknown]
  - Fatigue [Unknown]
  - Leukopenia [Unknown]
  - Feeling abnormal [Unknown]
  - Malaise [Unknown]
  - Throat tightness [Unknown]
  - Dyspnoea [Unknown]
  - Fatigue [Unknown]
  - Malaise [Unknown]
  - Nausea [Unknown]
